FAERS Safety Report 12779620 (Version 1)
Quarter: 2016Q3

REPORT INFORMATION
  Report Type: Spontaneous
  Country: US (occurrence: US)
  Receive Date: 20160922
  Receipt Date: 20160922
  Transmission Date: 20161109
  Serious: Yes (Hospitalization)
  Sender: FDA-Public Use
  Company Number: None

PATIENT
  Age: 61 Year
  Sex: Male
  Weight: 93.4 kg

DRUGS (1)
  1. SUNITINIB [Suspect]
     Active Substance: SUNITINIB
     Indication: RENAL CELL CARCINOMA
     Route: 048
     Dates: start: 20081023, end: 20091115

REACTIONS (2)
  - Acute myocardial infarction [None]
  - Angina pectoris [None]

NARRATIVE: CASE EVENT DATE: 20091115
